FAERS Safety Report 17887754 (Version 2)
Quarter: 2020Q3

REPORT INFORMATION
  Report Type: Report from Study
  Country: None (occurrence: US)
  Receive Date: 20200611
  Receipt Date: 20200717
  Transmission Date: 20201103
  Serious: Yes (Hospitalization)
  Sender: FDA-Public Use
  Company Number: US-ABBVIE-20K-163-3435828-00

PATIENT
  Age: 25 Year
  Sex: Female

DRUGS (3)
  1. HUMIRA [Suspect]
     Active Substance: ADALIMUMAB
     Dosage: DAY 15
     Route: 058
     Dates: start: 20200519, end: 20200519
  2. HUMIRA [Suspect]
     Active Substance: ADALIMUMAB
     Indication: CROHN^S DISEASE
     Dosage: DAY 1
     Route: 058
     Dates: start: 20200504, end: 20200504
  3. HUMIRA [Suspect]
     Active Substance: ADALIMUMAB
     Route: 058
     Dates: start: 20200602

REACTIONS (22)
  - Pyrexia [Recovering/Resolving]
  - Weight decreased [Unknown]
  - Noninfective gingivitis [Unknown]
  - Depressed mood [Unknown]
  - Nausea [Recovering/Resolving]
  - Loss of personal independence in daily activities [Unknown]
  - Injection site pain [Recovered/Resolved]
  - Headache [Unknown]
  - Gastrointestinal disorder [Unknown]
  - Vascular device infection [Unknown]
  - Decreased appetite [Not Recovered/Not Resolved]
  - Anxiety [Recovering/Resolving]
  - Feeding disorder [Unknown]
  - Abdominal pain [Unknown]
  - Injection site pain [Unknown]
  - Vomiting [Recovering/Resolving]
  - Ulcer haemorrhage [Unknown]
  - Fear [Recovering/Resolving]
  - Insomnia [Recovering/Resolving]
  - Diarrhoea [Not Recovered/Not Resolved]
  - Chest pain [Unknown]
  - Therapeutic response shortened [Unknown]

NARRATIVE: CASE EVENT DATE: 2020
